FAERS Safety Report 9070497 (Version 2)
Quarter: 2013Q1

REPORT INFORMATION
  Report Type: Spontaneous
  Country: US (occurrence: US)
  Receive Date: 20130215
  Receipt Date: 20130307
  Transmission Date: 20140127
  Serious: Yes (Other)
  Sender: FDA-Public Use
  Company Number: US-JNJFOC-20130208227

PATIENT
  Sex: Male
  Weight: 108.86 kg

DRUGS (7)
  1. DURAGESIC [Suspect]
     Indication: RHEUMATOID ARTHRITIS
     Route: 062
     Dates: end: 2009
  2. DURAGESIC [Suspect]
     Indication: GOUT
     Route: 062
     Dates: end: 2009
  3. DURAGESIC [Suspect]
     Indication: PAIN
     Route: 062
     Dates: end: 2009
  4. VALIUM [Concomitant]
     Indication: ANXIETY
     Route: 048
  5. BYSTOLIC [Concomitant]
     Indication: HYPERTENSION
     Route: 048
     Dates: start: 2008
  6. ALLOPURINOL [Concomitant]
     Indication: GOUT
     Route: 048
     Dates: start: 2008
  7. PHENERGAN [Concomitant]
     Indication: NAUSEA
     Dosage: 3-4 TIMES
     Route: 048

REACTIONS (4)
  - Barrett^s oesophagus [Not Recovered/Not Resolved]
  - Road traffic accident [Recovered/Resolved]
  - Migraine [Not Recovered/Not Resolved]
  - Muscle spasms [Not Recovered/Not Resolved]
